FAERS Safety Report 17261841 (Version 1)
Quarter: 2019Q4

REPORT INFORMATION
  Report Type: Spontaneous
  Country: US (occurrence: US)
  Receive Date: 20191217
  Receipt Date: 20191217
  Transmission Date: 20200122
  Serious: Yes (Life-Threatening, Hospitalization, Disabling, Other)
  Sender: FDA-Public Use
  Company Number: None

PATIENT
  Age: 62 Year
  Sex: Female
  Weight: 57.9 kg

DRUGS (9)
  1. OMEGA 369 [Concomitant]
     Active Substance: FISH OIL
  2. ALPALAPOLIC ACID [Concomitant]
  3. HIGH BP MEDS [Concomitant]
  4. VITAMIN C [Concomitant]
     Active Substance: ASCORBIC ACID
  5. NOVOLOG [Concomitant]
     Active Substance: INSULIN ASPART
  6. CLINDAMYCIN PHOSPHATE. [Suspect]
     Active Substance: CLINDAMYCIN PHOSPHATE
     Indication: ACNE
     Route: 061
     Dates: start: 20191120, end: 20191121
  7. MAGNESIUM [Concomitant]
     Active Substance: MAGNESIUM
  8. FISH OIL [Concomitant]
     Active Substance: FISH OIL
  9. MULTIVITIMIN [Concomitant]
     Active Substance: VITAMINS

REACTIONS (6)
  - Hypotension [None]
  - Vomiting [None]
  - Burning sensation [None]
  - Nausea [None]
  - Skin exfoliation [None]
  - Gait inability [None]

NARRATIVE: CASE EVENT DATE: 20191120
